FAERS Safety Report 14787251 (Version 1)
Quarter: 2018Q2

REPORT INFORMATION
  Report Type: Spontaneous
  Country: US (occurrence: US)
  Receive Date: 20180421
  Receipt Date: 20180421
  Transmission Date: 20180711
  Serious: No
  Sender: FDA-Public Use
  Company Number: PHEH2018US014835

PATIENT
  Sex: Female

DRUGS (1)
  1. ZOMETA [Suspect]
     Active Substance: ZOLEDRONIC ACID
     Indication: PRODUCT USED FOR UNKNOWN INDICATION
     Dosage: 2X A U YEAR
     Route: 065
     Dates: start: 20180410

REACTIONS (4)
  - Influenza like illness [Unknown]
  - Headache [Unknown]
  - Nasopharyngitis [Unknown]
  - Chills [Unknown]
